FAERS Safety Report 4717489-0 (Version None)
Quarter: 2005Q3

REPORT INFORMATION
  Report Type: 
  Country: None (occurrence: None)
  Receive Date: 20050715
  Receipt Date: 20050630
  Transmission Date: 20060218
  Serious: Yes (Disabling, Other)
  Sender: FDA-Public Use
  Company Number: A-US2005-09143

PATIENT
  Age: 52 Year
  Sex: Female

DRUGS (24)
  1. TRACLEER [Suspect]
     Indication: PULMONARY HYPERTENSION
     Dosage: 62.5 MG, BID, ORAL
     Route: 048
     Dates: start: 20050215, end: 20050311
  2. DEMADEX [Concomitant]
  3. TRAZODONE (TRAZODONE) [Concomitant]
  4. AVANDIA [Concomitant]
  5. PREVACID [Concomitant]
  6. MICRO-K (POTASSIUM CHLORIDE) [Concomitant]
  7. TRIAMTERENE (TRIAMTERENE) [Concomitant]
  8. MONOPRIL [Concomitant]
  9. SYNTHROID [Concomitant]
  10. COREG [Concomitant]
  11. NEURONTIN [Concomitant]
  12. SPIRONOLACTONE [Concomitant]
  13. PLAVIX [Concomitant]
  14. HUMALOG [Concomitant]
  15. FLONASE [Concomitant]
  16. MELATONIN (MELATONIN) [Concomitant]
  17. COUMADIN [Concomitant]
  18. MIRAPEX [Concomitant]
  19. ADVAIR (SALMETEROL XINAFOATE) [Concomitant]
  20. LANTUS [Concomitant]
  21. XANAX [Concomitant]
  22. DARVOCET-N (PARACETAMOL, DEXTROPROPOXYPHENE NAPSILATE) [Concomitant]
  23. ZOFRAN (SALBUTAMOL) [Concomitant]
  24. VITAMINS (VITAMINS NOS) [Concomitant]

REACTIONS (11)
  - BLINDNESS [None]
  - CARDIOVASCULAR DISORDER [None]
  - CEREBROVASCULAR ACCIDENT [None]
  - CYST RUPTURE [None]
  - DERMOID CYST [None]
  - OEDEMA [None]
  - OPTIC ISCHAEMIC NEUROPATHY [None]
  - OPTIC NERVE INFARCTION [None]
  - PUPILLARY DISORDER [None]
  - SYNCOPE [None]
  - WEIGHT INCREASED [None]
